FAERS Safety Report 11752915 (Version 1)
Quarter: 2015Q4

REPORT INFORMATION
  Report Type: Spontaneous
  Country: US (occurrence: None)
  Receive Date: 20151117
  Receipt Date: 20151117
  Transmission Date: 20160304
  Serious: Yes (Hospitalization)
  Sender: FDA-Public Use
  Company Number: None

PATIENT
  Sex: Female

DRUGS (1)
  1. NERVE PAIN PLUS [Suspect]
     Active Substance: HOMEOPATHICS

REACTIONS (1)
  - Peripheral swelling [None]
